FAERS Safety Report 14839074 (Version 2)
Quarter: 2018Q2

REPORT INFORMATION
  Report Type: Spontaneous
  Country: BR (occurrence: BR)
  Receive Date: 20180502
  Receipt Date: 20180626
  Transmission Date: 20180711
  Serious: Yes (Hospitalization, Other)
  Sender: FDA-Public Use
  Company Number: BR-PFIZER INC-2018171843

PATIENT
  Age: 66 Year
  Sex: Female

DRUGS (2)
  1. NORVASC [Suspect]
     Active Substance: AMLODIPINE BESYLATE
     Dosage: 10 MG, ONE TABLET DAILY
  2. NORVASC [Suspect]
     Active Substance: AMLODIPINE BESYLATE
     Indication: HYPERTENSION
     Dosage: 1 TABLET IN THE MORNING

REACTIONS (3)
  - Arterial occlusive disease [Recovered/Resolved]
  - Blood cholesterol abnormal [Recovered/Resolved]
  - Thyroid hormones decreased [Recovered/Resolved]

NARRATIVE: CASE EVENT DATE: 2003
